FAERS Safety Report 24148632 (Version 1)
Quarter: 2024Q3

REPORT INFORMATION
  Report Type: Spontaneous
  Country: FR (occurrence: FR)
  Receive Date: 20240729
  Receipt Date: 20240729
  Transmission Date: 20241017
  Serious: Yes (Life-Threatening)
  Sender: MYLAN
  Company Number: None

PATIENT
  Age: 1 Year
  Sex: Male
  Weight: 7.6 kg

DRUGS (4)
  1. DEXAMETHASONE [Suspect]
     Active Substance: DEXAMETHASONE
     Indication: Stridor
     Dosage: 4 MILLIGRAM, Q4H, DEXAMETHASONE MYLAN 4 MG/1 ML, INJECTABLE SOLUTION IN AMPOULE
     Route: 042
     Dates: start: 20240711
  2. EPINEPHRINE [Suspect]
     Active Substance: EPINEPHRINE
     Indication: Stridor
     Dosage: 1 MILLIGRAM, Q4H, ADRENALINE AGUETTANT 1 MG/ML WITHOUT SULFITE, INJECTABLE SOLUTION - AMPOULE 5 ML
     Route: 042
     Dates: start: 20240711
  3. ESOMEPRAZOLE [Concomitant]
     Active Substance: ESOMEPRAZOLE
     Dosage: UNK
     Route: 065
  4. NALBUPHINE HYDROCHLORIDE [Concomitant]
     Active Substance: NALBUPHINE HYDROCHLORIDE
     Dosage: UNK, NALBUPHINE RENAUDIN 20 MG/2 ML, INJECTABLE SOLUTION
     Route: 065

REACTIONS (5)
  - Ejection fraction decreased [Recovering/Resolving]
  - Hypertension [Recovering/Resolving]
  - Tachycardia [Recovering/Resolving]
  - Acute pulmonary oedema [Recovering/Resolving]
  - Overdose [Recovering/Resolving]

NARRATIVE: CASE EVENT DATE: 20240712
